FAERS Safety Report 20663414 (Version 1)
Quarter: 2022Q2

REPORT INFORMATION
  Report Type: Spontaneous
  Country: JP (occurrence: JP)
  Receive Date: 20220401
  Receipt Date: 20220401
  Transmission Date: 20220721
  Serious: Yes (Hospitalization)
  Sender: FDA-Public Use
  Company Number: JP-GSKNCCC-Case-01456940_AE-56443

PATIENT
  Sex: Male

DRUGS (4)
  1. TRELEGY ELLIPTA [Suspect]
     Active Substance: FLUTICASONE FUROATE\UMECLIDINIUM BROMIDE\VILANTEROL TRIFENATATE
     Dosage: 100 ?G
     Route: 055
  2. PREDONINE [Concomitant]
     Active Substance: PREDNISOLONE
     Indication: Asthma
  3. THEO-DUR [Concomitant]
     Active Substance: THEOPHYLLINE ANHYDROUS
     Indication: Asthma
  4. CARBOCYSTEINE [Concomitant]
     Active Substance: CARBOCYSTEINE
     Indication: Asthma

REACTIONS (6)
  - Hospitalisation [Unknown]
  - Dizziness [Unknown]
  - Dyspnoea [Unknown]
  - Ear discomfort [Unknown]
  - Dysphonia [Unknown]
  - Emphysema [Unknown]
